FAERS Safety Report 15931725 (Version 2)
Quarter: 2019Q2

REPORT INFORMATION
  Report Type: Spontaneous
  Country: ES (occurrence: ES)
  Receive Date: 20190207
  Receipt Date: 20190517
  Transmission Date: 20190711
  Serious: Yes (Other)
  Sender: FDA-Public Use
  Company Number: ES-DSJP-DSE-2019-103340

PATIENT

DRUGS (2)
  1. LIXIANA [Suspect]
     Active Substance: EDOXABAN TOSYLATE
     Indication: ATRIAL FIBRILLATION
     Dosage: UNK
     Route: 048
     Dates: start: 2017, end: 20181128
  2. CLEXANE [Interacting]
     Active Substance: ENOXAPARIN SODIUM
     Indication: PELVIC FRACTURE
     Dosage: 60 MG, QD
     Route: 058
     Dates: start: 20181105, end: 20181128

REACTIONS (3)
  - Drug interaction [Recovered/Resolved]
  - Product substitution error [Recovered/Resolved]
  - Haematoma muscle [Recovered/Resolved]

NARRATIVE: CASE EVENT DATE: 20181128
